FAERS Safety Report 4431846-1 (Version None)
Quarter: 2004Q3

REPORT INFORMATION
  Report Type: 
  Country: None (occurrence: None)
  Receive Date: 20040818
  Receipt Date: 20040804
  Transmission Date: 20050211
  Serious: Yes (Death, Hospitalization)
  Sender: FDA-Public Use
  Company Number: A03200402456

PATIENT
  Age: 38 Year
  Sex: Female

DRUGS (5)
  1. PLAVIX [Suspect]
     Indication: ANGIOPLASTY
     Dosage: 75 MG QD - ORAL
     Route: 048
     Dates: start: 20030428, end: 20030507
  2. PLAVIX [Suspect]
     Indication: CORONARY ARTERY OCCLUSION
     Dosage: 75 MG QD - ORAL
     Route: 048
     Dates: start: 20030428, end: 20030507
  3. PLAVIX [Suspect]
     Indication: MYOCARDIAL INFARCTION
     Dosage: 75 MG QD - ORAL
     Route: 048
     Dates: start: 20030428, end: 20030507
  4. METOPROLOL SUCCINATE [Concomitant]
  5. ACETYLSALICYLIC ACID [Concomitant]

REACTIONS (14)
  - ACCIDENT [None]
  - BRAIN OEDEMA [None]
  - CARDIOMEGALY [None]
  - DIARRHOEA [None]
  - HEART RATE INCREASED [None]
  - HEPATIC CONGESTION [None]
  - HYPERTENSIVE HEART DISEASE [None]
  - PLASMAPHERESIS [None]
  - PULMONARY CONGESTION [None]
  - PULMONARY OEDEMA [None]
  - RENAL TUBULAR NECROSIS [None]
  - RESPIRATORY DISTRESS [None]
  - THROMBOTIC MICROANGIOPATHY [None]
  - THROMBOTIC THROMBOCYTOPENIC PURPURA [None]
